FAERS Safety Report 9023594 (Version 1)
Quarter: 2013Q1

REPORT INFORMATION
  Report Type: Spontaneous
  Country: JP (occurrence: JP)
  Receive Date: 20130121
  Receipt Date: 20130121
  Transmission Date: 20140127
  Serious: Yes (Other)
  Sender: FDA-Public Use
  Company Number: JP-TEVA-381625ISR

PATIENT
  Sex: 0

DRUGS (1)
  1. PLATOSIN [Suspect]

REACTIONS (1)
  - Parosmia [Unknown]
